FAERS Safety Report 7782057-3 (Version None)
Quarter: 2011Q3

REPORT INFORMATION
  Report Type: 
  Country: None (occurrence: None)
  Receive Date: 20110927
  Receipt Date: 20110914
  Transmission Date: 20111222
  Serious: Yes (Other)
  Sender: FDA-Public Use
  Company Number: PHHY2011US37569

PATIENT
  Sex: Female
  Weight: 48.526 kg

DRUGS (29)
  1. RENOVA [Concomitant]
     Dosage: UNK UKN, UNK
  2. METHENAMINE TAB [Concomitant]
     Dosage: 0.5 G, UNK
  3. FERROUS SULFATE TAB [Concomitant]
     Dosage: UNK
  4. FEOSOL [Concomitant]
     Dosage: 45 MG, UNK
  5. CALTRATE +D [Concomitant]
     Dosage: UNK UKN, UNK
  6. RESTASIS [Concomitant]
     Dosage: UNK UKN, UNK
  7. ULTRAM [Concomitant]
     Dosage: 500 MG, UNK
  8. CLONAZEPAM [Concomitant]
     Dosage: 0.5 MG, UNK
  9. COQ10 [Concomitant]
     Dosage: UNK UKN, UNK
  10. LEVOTHYROXINE SODIUM [Concomitant]
     Dosage: 25 UG, UNK
  11. NASONEX [Concomitant]
     Dosage: 50 MCG/AC
  12. IMITREX [Concomitant]
     Dosage: 25 MG, UNK
  13. GILENYA [Suspect]
     Indication: MULTIPLE SCLEROSIS
     Dosage: 0.5 MG, QD
     Route: 048
     Dates: start: 20110304
  14. NEURONTIN [Concomitant]
     Dosage: 800 MG, UNK
  15. BETAMETHA [Concomitant]
     Dosage: UNK UKN, UNK
  16. LACTULOSE [Concomitant]
     Dosage: 10 GM/15
  17. HYDROCORT [Concomitant]
     Dosage: UNK UKN, UNK
  18. VITAMIN B-12 [Concomitant]
     Dosage: 1000 UG, UNK
  19. VITAMIN E [Concomitant]
     Dosage: 200 U, UNK
  20. PRAVASTATIN [Concomitant]
     Dosage: UNK UG/ML, OT
  21. PREMARIN [Concomitant]
     Dosage: 0.625 MG, UNK
  22. NIFEREX [Concomitant]
     Dosage: UNK UKN, UNK
  23. WELLBUTRIN XL [Concomitant]
     Dosage: 150 MG, UNK
  24. VITAMIN D [Concomitant]
     Dosage: 5000 IU, UNK
  25. GLUCOSAMINE W/CHONDROITIN [Concomitant]
     Dosage: UNK UKN, UNK
  26. ASCORBIC ACID [Concomitant]
     Dosage: 500 MG, UNK
  27. CELEXA [Concomitant]
     Dosage: 10 MG, UNK
  28. TRIAMCINOLONE ACETONIDE W/NYSTATIN [Concomitant]
     Dosage: UNK UKN, UNK
  29. SENOKOT [Concomitant]

REACTIONS (10)
  - HAEMOGLOBIN DECREASED [None]
  - WEIGHT DECREASED [None]
  - DECREASED APPETITE [None]
  - PAIN [None]
  - ABDOMINAL PAIN UPPER [None]
  - DIZZINESS [None]
  - LIPASE INCREASED [None]
  - DYSPNOEA [None]
  - FALL [None]
  - MIGRAINE [None]
